FAERS Safety Report 7526354-5 (Version None)
Quarter: 2011Q2

REPORT INFORMATION
  Report Type: 
  Country: None (occurrence: None)
  Receive Date: 20110606
  Receipt Date: 20110602
  Transmission Date: 20111010
  Serious: Yes (Death)
  Sender: FDA-Public Use
  Company Number: US-ABBOTT-11P-163-0713323-00

PATIENT
  Sex: Female
  Weight: 57.658 kg

DRUGS (2)
  1. LUPRON DEPOT [Suspect]
     Indication: UTERINE LEIOMYOMA
     Route: 030
     Dates: end: 20090701
  2. LUPRON DEPOT [Suspect]
     Route: 030
     Dates: start: 20110225, end: 20110525

REACTIONS (1)
  - RUPTURED CEREBRAL ANEURYSM [None]
